FAERS Safety Report 5961770-4 (Version None)
Quarter: 2008Q4

REPORT INFORMATION
  Report Type: 
  Country: None (occurrence: None)
  Receive Date: 20081121
  Receipt Date: 20081118
  Transmission Date: 20090506
  Serious: Yes (Hospitalization)
  Sender: FDA-Public Use
  Company Number: US-MERCK-0811USA01811

PATIENT
  Age: 71 Year
  Sex: Male

DRUGS (6)
  1. JANUVIA [Suspect]
     Indication: DIABETES MELLITUS
     Route: 048
     Dates: start: 20080924, end: 20081001
  2. PRAVASTATIN SODIUM [Concomitant]
     Route: 065
  3. HYZAAR [Concomitant]
     Route: 048
  4. COREG [Concomitant]
     Route: 065
  5. PLAVIX [Concomitant]
     Route: 065
  6. NITROGLYCERIN [Concomitant]
     Route: 065

REACTIONS (1)
  - DRUG HYPERSENSITIVITY [None]
